FAERS Safety Report 5599311-6 (Version None)
Quarter: 2008Q1

REPORT INFORMATION
  Report Type: 
  Country: None (occurrence: None)
  Receive Date: 20080117
  Receipt Date: 20080108
  Transmission Date: 20080703
  Serious: Yes (Hospitalization)
  Sender: FDA-Public Use
  Company Number: 2008AL000209

PATIENT

DRUGS (1)
  1. BUSPIRONE HCL [Suspect]

REACTIONS (1)
  - HOSPITALISATION [None]
